FAERS Safety Report 14935750 (Version 2)
Quarter: 2018Q2

REPORT INFORMATION
  Report Type: Spontaneous
  Country: JP (occurrence: JP)
  Receive Date: 20180524
  Receipt Date: 20180622
  Transmission Date: 20180711
  Serious: Yes (Other)
  Sender: FDA-Public Use
  Company Number: PHJP2018JP011333

PATIENT
  Age: 80 Year
  Sex: Female

DRUGS (2)
  1. VEGAMOX OPHTHALMIC SOLUTION 0.5% [Suspect]
     Active Substance: MOXIFLOXACIN HYDROCHLORIDE
     Indication: POSTOPERATIVE CARE
     Dosage: UNK
     Route: 047
  2. BETAMETHASONE. [Concomitant]
     Active Substance: BETAMETHASONE
     Indication: PRODUCT USED FOR UNKNOWN INDICATION
     Dosage: UNK UNK, QID
     Route: 047

REACTIONS (8)
  - Hypopyon [Unknown]
  - Candida infection [Unknown]
  - Endophthalmitis [Recovering/Resolving]
  - Foreign body in eye [Unknown]
  - Conjunctival hyperaemia [Unknown]
  - Anterior chamber inflammation [Unknown]
  - Eye pain [Unknown]
  - Visual acuity reduced [Unknown]
